FAERS Safety Report 24855918 (Version 1)
Quarter: 2025Q1

REPORT INFORMATION
  Report Type: Spontaneous
  Country: IN (occurrence: IN)
  Receive Date: 20250117
  Receipt Date: 20250117
  Transmission Date: 20250409
  Serious: Yes (Other)
  Sender: Teyro Labs
  Company Number: IN-TEYRO-2025-TY-000040

PATIENT
  Age: 3 Year
  Sex: Female

DRUGS (1)
  1. TOPOTECAN [Suspect]
     Active Substance: TOPOTECAN HYDROCHLORIDE
     Indication: Vitreous floaters
     Route: 035

REACTIONS (3)
  - Fibrosis [Unknown]
  - Conjunctival disorder [Unknown]
  - Off label use [Unknown]
